FAERS Safety Report 7076784-3 (Version None)
Quarter: 2010Q4

REPORT INFORMATION
  Report Type: 
  Country: None (occurrence: None)
  Receive Date: 20101101
  Receipt Date: 20101025
  Transmission Date: 20110411
  Serious: Yes (Other)
  Sender: FDA-Public Use
  Company Number: US-B.I. PHARMACEUTICALS,INC./RIDGEFIELD-2008-BP-10596BP

PATIENT
  Age: 81 Year
  Sex: Female

DRUGS (5)
  1. SPIRIVA [Suspect]
     Indication: CHRONIC OBSTRUCTIVE PULMONARY DISEASE
     Dosage: 18 MCG
     Route: 055
     Dates: start: 20040101
  2. SPIRIVA [Suspect]
     Indication: EMPHYSEMA
  3. LASIX [Concomitant]
     Indication: OEDEMA
     Dosage: 40 MG
     Route: 048
     Dates: start: 20050101
  4. MAXAIR [Concomitant]
     Indication: DYSPNOEA
     Route: 055
     Dates: start: 20040101
  5. MAXAIR [Concomitant]
     Indication: EMPHYSEMA

REACTIONS (14)
  - ABDOMINAL PAIN UPPER [None]
  - ACNE [None]
  - ANAEMIA [None]
  - CANDIDIASIS [None]
  - CONSTIPATION [None]
  - DRY MOUTH [None]
  - DYSPHONIA [None]
  - LUNG NEOPLASM MALIGNANT [None]
  - PRURITUS [None]
  - RHINORRHOEA [None]
  - SKIN PAPILLOMA [None]
  - TONGUE DISCOLOURATION [None]
  - VISION BLURRED [None]
  - VITAMIN D DEFICIENCY [None]
